FAERS Safety Report 4983183-4 (Version None)
Quarter: 2006Q2

REPORT INFORMATION
  Report Type: 
  Country: None (occurrence: None)
  Receive Date: 20060426
  Receipt Date: 20060424
  Transmission Date: 20061013
  Serious: Yes (Other)
  Sender: FDA-Public Use
  Company Number: CA-GLAXOSMITHKLINE-A0603108A

PATIENT
  Sex: Female

DRUGS (3)
  1. FLOVENT [Suspect]
     Indication: DRUG USE FOR UNKNOWN INDICATION
     Route: 055
  2. SALBUTAMOL [Concomitant]
     Route: 055
  3. WARFARIN SODIUM [Concomitant]

REACTIONS (6)
  - AFFECT LABILITY [None]
  - CRYING [None]
  - DIZZINESS [None]
  - INSOMNIA [None]
  - PSYCHOTIC DISORDER [None]
  - URINARY RETENTION [None]
